FAERS Safety Report 5257488-6 (Version None)
Quarter: 2007Q1

REPORT INFORMATION
  Report Type: 
  Country: None (occurrence: None)
  Receive Date: 20070307
  Receipt Date: 20060926
  Transmission Date: 20070707
  Serious: No
  Sender: FDA-Public Use
  Company Number: US-GLAXOSMITHKLINE-A0617483A

PATIENT
  Age: 58 Year
  Sex: Female

DRUGS (9)
  1. REQUIP [Suspect]
     Indication: RESTLESS LEGS SYNDROME
     Dosage: .5MG SEE DOSAGE TEXT
     Route: 048
     Dates: start: 20060809
  2. LIPITOR [Concomitant]
  3. GLUCOPHAGE [Concomitant]
  4. ALTACE [Concomitant]
  5. NEXIUM [Concomitant]
  6. ZOLOFT [Concomitant]
  7. ZANTAC [Concomitant]
  8. PREMARIN [Concomitant]
  9. LANTUS [Concomitant]

REACTIONS (1)
  - SOMNOLENCE [None]
